FAERS Safety Report 9279123 (Version 1)
Quarter: 2013Q2

REPORT INFORMATION
  Report Type: Spontaneous
  Country: US (occurrence: US)
  Receive Date: 20130508
  Receipt Date: 20130508
  Transmission Date: 20140414
  Serious: No
  Sender: FDA-Public Use
  Company Number: US-BAYER-2013-057700

PATIENT
  Age: 69 Year
  Sex: Female
  Weight: 83.9 kg

DRUGS (6)
  1. ALEVE TABLET [Suspect]
     Indication: BACK PAIN
     Dosage: 1 DF, BID
     Route: 048
  2. SIMVASTATIN [Concomitant]
  3. CARVEDILOL [Concomitant]
  4. FISH OIL [Concomitant]
  5. VITAMIN E [Concomitant]
  6. CALCIUM [Concomitant]

REACTIONS (1)
  - Drug ineffective [None]
